FAERS Safety Report 11849302 (Version 1)
Quarter: 2015Q4

REPORT INFORMATION
  Report Type: Spontaneous
  Country: FR (occurrence: FR)
  Receive Date: 20151218
  Receipt Date: 20151218
  Transmission Date: 20160305
  Serious: Yes (Disabling)
  Sender: FDA-Public Use
  Company Number: FR-FERRINGPH-2015FE02004

PATIENT

DRUGS (8)
  1. GONAL-F [Suspect]
     Active Substance: FOLLITROPIN
     Indication: OVULATION INDUCTION
     Dosage: 300 UNK, UNK
     Route: 058
     Dates: start: 20140915, end: 201501
  2. MENOPUR [Suspect]
     Active Substance: FOLLICLE STIMULATING HORMONE BETA POLYPEPTIDE\LUTROPIN ALFA
     Indication: OVULATION INDUCTION
     Dosage: 600 IU, UNK
     Route: 058
     Dates: start: 20150120, end: 20150120
  3. OVITRELLE [Suspect]
     Active Substance: CHORIOGONADOTROPIN ALFA
     Indication: OVULATION INDUCTION
     Dosage: UNK
     Route: 058
     Dates: start: 201409, end: 201501
  4. ORGALUTRAN [Suspect]
     Active Substance: GANIRELIX ACETATE
     Indication: OVULATION INDUCTION
     Dosage: UNK
     Route: 058
     Dates: start: 201409, end: 201501
  5. GONAL-F [Suspect]
     Active Substance: FOLLITROPIN
     Dosage: 900 UNK, UNK
     Dates: start: 20141117
  6. CLOMID [Suspect]
     Active Substance: CLOMIPHENE CITRATE
     Indication: OVULATION INDUCTION
     Dosage: 1 DF, DAILY
     Route: 048
     Dates: start: 201402, end: 201402
  7. GONAL-F [Suspect]
     Active Substance: FOLLITROPIN
     Dosage: 450 UNK, UNK
     Dates: start: 20141016
  8. GONAL-F [Suspect]
     Active Substance: FOLLITROPIN
     Dosage: 900 UNK, UNK
     Dates: start: 20150120

REACTIONS (1)
  - Multiple sclerosis relapse [Recovered/Resolved with Sequelae]

NARRATIVE: CASE EVENT DATE: 201502
